FAERS Safety Report 7631131-0 (Version None)
Quarter: 2011Q3

REPORT INFORMATION
  Report Type: 
  Country: None (occurrence: None)
  Receive Date: 20110715
  Receipt Date: 20110705
  Transmission Date: 20111222
  Serious: No
  Sender: FDA-Public Use
  Company Number: AE-2008

PATIENT

DRUGS (1)
  1. ALPRAZOLAM [Suspect]
     Indication: ANXIETY DISORDER

REACTIONS (1)
  - DRUG INEFFECTIVE [None]
